FAERS Safety Report 14600171 (Version 2)
Quarter: 2018Q1

REPORT INFORMATION
  Report Type: Report from Study
  Country: ES (occurrence: ES)
  Receive Date: 20180305
  Receipt Date: 20180315
  Transmission Date: 20180509
  Serious: Yes (Other)
  Sender: FDA-Public Use
  Company Number: ES-SA-2018SA057712

PATIENT
  Age: 58 Year
  Sex: Female
  Weight: 97 kg

DRUGS (8)
  1. LINAGLIPTIN [Concomitant]
     Active Substance: LINAGLIPTIN
  2. INSULIN GLARGINE [Suspect]
     Active Substance: INSULIN GLARGINE
     Indication: TYPE 2 DIABETES MELLITUS
     Route: 058
     Dates: start: 201709
  3. PARACETAMOL [Concomitant]
     Active Substance: ACETAMINOPHEN
     Indication: PAIN
  4. JENTADUETO [Concomitant]
     Active Substance: LINAGLIPTIN\METFORMIN HYDROCHLORIDE
     Indication: TYPE 2 DIABETES MELLITUS
     Route: 065
     Dates: start: 2015
  5. METFORMIN HYDROCHLORIDE. [Concomitant]
     Active Substance: METFORMIN HYDROCHLORIDE
  6. INSULIN GLARGINE [Suspect]
     Active Substance: INSULIN GLARGINE
     Indication: TYPE 2 DIABETES MELLITUS
     Route: 058
     Dates: start: 201711
  7. TRANXILIUM [Concomitant]
     Active Substance: CLORAZEPATE DIPOTASSIUM
     Indication: DEPRESSION
     Route: 065
     Dates: start: 1998
  8. AMLODIPINO SANOFI-AVENTIS [Concomitant]
     Indication: HYPERTENSION
     Route: 065
     Dates: start: 2013

REACTIONS (3)
  - Abdominal mass [Not Recovered/Not Resolved]
  - Influenza [Recovering/Resolving]
  - Nail discolouration [Recovering/Resolving]

NARRATIVE: CASE EVENT DATE: 201711
